FAERS Safety Report 15974934 (Version 4)
Quarter: 2019Q4

REPORT INFORMATION
  Report Type: Other
  Country: CA (occurrence: CA)
  Receive Date: 20190218
  Receipt Date: 20191204
  Transmission Date: 20200122
  Serious: Yes (Death, Hospitalization, Other)
  Sender: FDA-Public Use
  Company Number: CA-ASTELLAS-2019US005884

PATIENT
  Age: 2 Year
  Sex: Female

DRUGS (13)
  1. RAPAMUNE [Interacting]
     Active Substance: SIROLIMUS
     Indication: IMMUNOSUPPRESSANT DRUG THERAPY
     Dosage: 0.5 MG, ONCE DAILY (1 EVERY 1 DAY)
     Route: 048
  2. RAPAMUNE [Interacting]
     Active Substance: SIROLIMUS
     Dosage: 0.1 MG, ONCE DAILY (1 EVERY 1 DAY)
     Route: 048
  3. MYCOPHENOLATE MOFETIL. [Concomitant]
     Active Substance: MYCOPHENOLATE MOFETIL
     Indication: PRODUCT USED FOR UNKNOWN INDICATION
     Dosage: 200 MG, ONCE DAILY (100MG 2 EVERY DAY)
     Route: 048
  4. TACROLIMUS. [Interacting]
     Active Substance: TACROLIMUS
     Dosage: 0.2 MG, EVERY 12 HOURS
     Route: 048
  5. AMIODARONE HYDROCHLORIDE. [Interacting]
     Active Substance: AMIODARONE HYDROCHLORIDE
     Indication: VENTRICULAR ARRHYTHMIA
     Dosage: 150 MG, ONCE DAILY (75 MG 2 EVERY 1 DAY)
     Route: 048
  6. CELLCEPT [Concomitant]
     Active Substance: MYCOPHENOLATE MOFETIL\MYCOPHENOLATE MOFETIL HYDROCHLORIDE
     Indication: PRODUCT USED FOR UNKNOWN INDICATION
     Route: 048
  7. RAPAMUNE [Interacting]
     Active Substance: SIROLIMUS
     Dosage: 0.3 MG, ONCE DAILY (1 EVERY 1 DAY)
     Route: 048
  8. PREDNISOLONE. [Concomitant]
     Active Substance: PREDNISOLONE
     Indication: PRODUCT USED FOR UNKNOWN INDICATION
     Dosage: UNK UNK, UNKNOWN FREQ.
     Route: 065
  9. THYMOGLOBULIN [Concomitant]
     Active Substance: LAPINE T-LYMPHOCYTE IMMUNE GLOBULIN
     Indication: PRODUCT USED FOR UNKNOWN INDICATION
     Dosage: UNK UNK, UNKNOWN FREQ.
     Route: 065
  10. TACROLIMUS. [Suspect]
     Active Substance: TACROLIMUS
     Indication: IMMUNOSUPPRESSANT DRUG THERAPY
     Dosage: 0.4 MG, ONCE DAILY
     Route: 048
  11. RAPAMUNE [Interacting]
     Active Substance: SIROLIMUS
     Dosage: 0.2 MG, ONCE DAILY (1 EVERY 1 DAY)
     Route: 048
  12. METHYLPREDNISOLONE SODIUM SUCCINATE. [Concomitant]
     Active Substance: METHYLPREDNISOLONE SODIUM SUCCINATE
     Indication: PRODUCT USED FOR UNKNOWN INDICATION
     Dosage: UNK UNK, UNKNOWN FREQ.
     Route: 065
  13. NADOLOL. [Concomitant]
     Active Substance: NADOLOL
     Indication: VENTRICULAR ARRHYTHMIA
     Dosage: UNK UNK, UNKNOWN FREQ.
     Route: 065

REACTIONS (19)
  - Pyrexia [Fatal]
  - Transaminases increased [Fatal]
  - Complication associated with device [Fatal]
  - Disturbance in attention [Fatal]
  - Drug interaction [Fatal]
  - Hyperbilirubinaemia [Fatal]
  - Ventricular tachycardia [Fatal]
  - Ejection fraction decreased [Fatal]
  - Right ventricular dysfunction [Fatal]
  - Drug level increased [Fatal]
  - Anaemia [Fatal]
  - Cardiac failure congestive [Fatal]
  - Electrocardiogram abnormal [Fatal]
  - International normalised ratio increased [Fatal]
  - Blood albumin increased [Fatal]
  - Haemoglobin decreased [Fatal]
  - Renal impairment [Fatal]
  - Coronary artery disease [Fatal]
  - White blood cell count decreased [Fatal]
